FAERS Safety Report 26193841 (Version 1)
Quarter: 2025Q4

REPORT INFORMATION
  Report Type: Spontaneous
  Country: US (occurrence: US)
  Receive Date: 20251224
  Receipt Date: 20251224
  Transmission Date: 20260118
  Serious: Yes (Hospitalization)
  Sender: YUNG SHIN PHARMACEUTICAL INDUSTRIAL
  Company Number: US-Yung Shin Pharmaceutical Ind.  Co., Ltd.-2191236

PATIENT
  Age: 65 Year
  Sex: Male

DRUGS (1)
  1. MELOXICAM [Suspect]
     Active Substance: MELOXICAM

REACTIONS (4)
  - Asthenia [Unknown]
  - Adrenal insufficiency [Unknown]
  - Hypercalcaemia [Unknown]
  - Confusional state [Unknown]
